FAERS Safety Report 9696145 (Version 1)
Quarter: 2013Q4

REPORT INFORMATION
  Report Type: Spontaneous
  Country: US (occurrence: None)
  Receive Date: 20131115
  Receipt Date: 20131115
  Transmission Date: 20140711
  Serious: Yes (Hospitalization)
  Sender: FDA-Public Use
  Company Number: KAD201311-001493

PATIENT
  Sex: Male

DRUGS (4)
  1. RIBAPAK (RIBAVIRIN) [Suspect]
     Indication: CHRONIC HEPATITIS C
  2. INCIVEK (TELAPREVIR) [Suspect]
  3. PEGASYS [Suspect]
     Dosage: 180 MCG/0.5 ML
  4. PROMACTA [Suspect]
     Route: 048

REACTIONS (1)
  - Drug-induced liver injury [None]
